FAERS Safety Report 10027205 (Version 1)
Quarter: 2014Q1

REPORT INFORMATION
  Report Type: Report from Study
  Country: US (occurrence: US)
  Receive Date: 20140321
  Receipt Date: 20140321
  Transmission Date: 20141002
  Serious: Yes (Hospitalization, Other)
  Sender: FDA-Public Use
  Company Number: US-009507513-1403USA006817

PATIENT
  Age: 81 Year
  Sex: Female
  Weight: 71.2 kg

DRUGS (8)
  1. SIMVASTATIN [Suspect]
     Indication: ACUTE CORONARY SYNDROME
     Dosage: 40 MG, QD, PM
     Route: 048
     Dates: start: 20070130, end: 20110326
  2. TEKTURNA [Concomitant]
     Dosage: DAILY DOSE: 300MG
     Route: 048
     Dates: start: 20080908
  3. MIRALAX [Concomitant]
     Dosage: UNK, PRN
     Route: 048
     Dates: start: 20100111
  4. TOPROL XL TABLETS [Concomitant]
     Dosage: DAILY DOSE:  200MG
     Route: 048
     Dates: start: 20081020
  5. ASPIRIN [Concomitant]
     Dosage: DAILY DOSE: 325MG
     Route: 048
     Dates: start: 20080925
  6. ANEXSIA [Concomitant]
     Dosage: UNK, PRN
     Route: 048
     Dates: start: 20070101
  7. AMLODIPINE [Concomitant]
     Dosage: DAILY DOSE: 5MG
     Route: 048
     Dates: start: 20070308
  8. LISINOPRIL [Concomitant]
     Dosage: DAILY DOSE: 40MG
     Route: 048
     Dates: start: 20070911

REACTIONS (1)
  - Cholecystitis [Recovered/Resolved]
